FAERS Safety Report 6243689-7 (Version None)
Quarter: 2009Q2

REPORT INFORMATION
  Report Type: 
  Country: None (occurrence: None)
  Receive Date: 20090624
  Receipt Date: 20090612
  Transmission Date: 20091009
  Serious: Yes (Other)
  Sender: FDA-Public Use
  Company Number: GB-PFIZER INC-2009226229

PATIENT

DRUGS (1)
  1. PREGABALIN [Suspect]

REACTIONS (1)
  - MYASTHENIA GRAVIS [None]
